FAERS Safety Report 6215245-8 (Version None)
Quarter: 2009Q2

REPORT INFORMATION
  Report Type: 
  Country: None (occurrence: None)
  Receive Date: 20090604
  Receipt Date: 20020619
  Transmission Date: 20091009
  Serious: Yes (Life-Threatening, Other)
  Sender: FDA-Public Use
  Company Number: US-BAXTER-2007BH009917

PATIENT
  Age: 40 Year
  Sex: Female

DRUGS (2)
  1. MEPERIDINE HCL [Suspect]
     Indication: PAIN MANAGEMENT
     Route: 042
     Dates: start: 20020610, end: 20020610
  2. GENTAMICIN [Concomitant]
     Indication: DRUG USE FOR UNKNOWN INDICATION
     Route: 065
     Dates: start: 20020610

REACTIONS (2)
  - MEDICATION ERROR [None]
  - RESPIRATORY ARREST [None]
